FAERS Safety Report 17689826 (Version 2)
Quarter: 2020Q2

REPORT INFORMATION
  Report Type: Spontaneous
  Country: US (occurrence: US)
  Receive Date: 20200421
  Receipt Date: 20200620
  Transmission Date: 20200714
  Serious: Yes (Hospitalization, Other)
  Sender: FDA-Public Use
  Company Number: NVSC2020US105322

PATIENT
  Age: 72 Year
  Sex: Male

DRUGS (1)
  1. PROMACTA [Suspect]
     Active Substance: ELTROMBOPAG OLAMINE
     Indication: PRODUCT USED FOR UNKNOWN INDICATION
     Dosage: 50 MG, QD
     Route: 048
     Dates: start: 20200407, end: 20200409

REACTIONS (8)
  - Vomiting [Unknown]
  - Pancreatitis [Recovering/Resolving]
  - Platelet count decreased [Unknown]
  - Nausea [Unknown]
  - Hypersensitivity [Unknown]
  - Pancreatic disorder [Unknown]
  - Abdominal pain [Recovering/Resolving]
  - Malaise [Unknown]

NARRATIVE: CASE EVENT DATE: 20200409
